FAERS Safety Report 18188765 (Version 1)
Quarter: 2020Q3

REPORT INFORMATION
  Report Type: Spontaneous
  Country: US (occurrence: US)
  Receive Date: 20200824
  Receipt Date: 20200824
  Transmission Date: 20201103
  Serious: Yes (Hospitalization, Other)
  Sender: FDA-Public Use
  Company Number: US-BAYER-2020-172442

PATIENT
  Age: 82 Year
  Sex: Male

DRUGS (1)
  1. ADEMPAS [Suspect]
     Active Substance: RIOCIGUAT
     Indication: PULMONARY HYPERTENSION
     Dosage: 2.0 MG, TID
     Route: 048
     Dates: start: 20200702, end: 20200714

REACTIONS (6)
  - Cough [None]
  - Vomiting [None]
  - Diarrhoea [None]
  - Pain in extremity [Recovered/Resolved]
  - Pulmonary pain [None]
  - Pneumonia [None]

NARRATIVE: CASE EVENT DATE: 20200814
